FAERS Safety Report 7352309-X (Version None)
Quarter: 2011Q1

REPORT INFORMATION
  Report Type: 
  Country: None (occurrence: None)
  Receive Date: 20110315
  Receipt Date: 20110302
  Transmission Date: 20110831
  Serious: Yes (Other)
  Sender: FDA-Public Use
  Company Number: AR-AMGEN-ARGSP2011013599

PATIENT
  Age: 57 Year
  Sex: Female

DRUGS (2)
  1. ENBREL [Suspect]
     Indication: PRODUCT USED FOR UNKNOWN INDICATION
     Dosage: 50 MG, WEEKLY
     Route: 065
     Dates: start: 20051101, end: 20110114
  2. METHOTREXATE SODIUM [Concomitant]
     Dosage: 10 MG, WEEKLY
     Route: 065

REACTIONS (2)
  - HERPES ZOSTER [None]
  - BLISTER [None]
